FAERS Safety Report 8789267 (Version 1)
Quarter: 2012Q4

REPORT INFORMATION
  Report Type: Spontaneous
  Country: US (occurrence: None)
  Receive Date: 20120910
  Receipt Date: 20120910
  Transmission Date: 20130627
  Serious: Yes (Death)
  Sender: FDA-Public Use
  Company Number: None

PATIENT
  Age: 36 Year
  Sex: Female
  Weight: 61.24 kg

DRUGS (2)
  1. LYRICA [Suspect]
     Indication: NERVE DAMAGE
     Dates: start: 20120324, end: 20120710
  2. LYRICA [Suspect]
     Indication: POSTOPERATIVE PAIN
     Dates: start: 20120324, end: 20120710

REACTIONS (4)
  - Completed suicide [None]
  - Personality change [None]
  - Abnormal behaviour [None]
  - Thinking abnormal [None]
